FAERS Safety Report 11972783 (Version 3)
Quarter: 2016Q1

REPORT INFORMATION
  Report Type: Spontaneous
  Country: US (occurrence: US)
  Receive Date: 20160128
  Receipt Date: 20160317
  Transmission Date: 20160526
  Serious: Yes (Other)
  Sender: FDA-Public Use
  Company Number: US-TEVA-629566USA

PATIENT
  Age: 64 Year
  Sex: Female

DRUGS (2)
  1. CARBOPLATIN. [Concomitant]
     Active Substance: CARBOPLATIN
     Indication: OVARIAN CANCER
     Route: 065
  2. PACLITAXEL. [Suspect]
     Active Substance: PACLITAXEL
     Indication: OVARIAN CANCER
     Dosage: EVERY THREE WEEKS FOR SIX CYCLES
     Route: 065

REACTIONS (4)
  - Myositis [Recovering/Resolving]
  - Systemic sclerosis [Recovering/Resolving]
  - Raynaud^s phenomenon [Recovering/Resolving]
  - Oesophageal motility disorder [Recovering/Resolving]
